FAERS Safety Report 17430645 (Version 1)
Quarter: 2020Q1

REPORT INFORMATION
  Report Type: Spontaneous
  Country: US (occurrence: US)
  Receive Date: 20200218
  Receipt Date: 20200218
  Transmission Date: 20200409
  Serious: No
  Sender: FDA-Public Use
  Company Number: US-PERRIGO-19US008361

PATIENT
  Sex: Male

DRUGS (2)
  1. MOMETASONE FUROATE. [Suspect]
     Active Substance: MOMETASONE FUROATE
     Indication: DERMATITIS
     Dosage: 1 APPLICATION, QD, PRN
     Route: 061
  2. KETOCONAZOLE. [Suspect]
     Active Substance: KETOCONAZOLE
     Indication: DERMATITIS
     Dosage: 1 APPLICATION, PRN
     Route: 061
     Dates: start: 2018, end: 20190710

REACTIONS (4)
  - Skin odour abnormal [Not Recovered/Not Resolved]
  - Skin exfoliation [Not Recovered/Not Resolved]
  - Off label use [Recovered/Resolved]
  - Exposure to unspecified agent [Not Recovered/Not Resolved]

NARRATIVE: CASE EVENT DATE: 2018
